FAERS Safety Report 7921987-6 (Version None)
Quarter: 2011Q4

REPORT INFORMATION
  Report Type: 
  Country: None (occurrence: None)
  Receive Date: 20111117
  Receipt Date: 20111111
  Transmission Date: 20120403
  Serious: Yes (Hospitalization, Disabling, Other)
  Sender: FDA-Public Use
  Company Number: BR-ABBOTT-11P-020-0862278-00

PATIENT
  Sex: Male
  Weight: 115 kg

DRUGS (6)
  1. CALCIUM CARBONATE [Concomitant]
     Indication: BONE DISORDER
     Route: 048
     Dates: start: 20090101
  2. CYCLOBENZAPRINE HYDROCHLORIDE [Concomitant]
     Indication: MUSCLE SPASMS
     Route: 048
  3. DIPYRONE TAB [Concomitant]
     Indication: ARTHRALGIA
     Route: 048
     Dates: start: 20070101
  4. CALCIUM CARBONATE [Concomitant]
     Indication: PROPHYLAXIS
  5. HUMIRA [Suspect]
     Indication: RHEUMATOID ARTHRITIS
     Route: 058
     Dates: start: 20090912
  6. PREDNISONE TAB [Concomitant]
     Indication: INFLAMMATION
     Route: 048
     Dates: start: 20070101

REACTIONS (6)
  - DYSSTASIA [None]
  - ARTHRALGIA [None]
  - ORTHOPEDIC EXAMINATION [None]
  - INFLUENZA [None]
  - ATROPHY [None]
  - ABASIA [None]
